FAERS Safety Report 21766140 (Version 1)
Quarter: 2022Q4

REPORT INFORMATION
  Report Type: Spontaneous
  Country: US (occurrence: US)
  Receive Date: 20221222
  Receipt Date: 20221222
  Transmission Date: 20230113
  Serious: Yes (Other)
  Sender: FDA-Public Use
  Company Number: US-009507513-2211USA001117

PATIENT
  Age: 60 Year

DRUGS (5)
  1. KEYTRUDA [Suspect]
     Active Substance: PEMBROLIZUMAB
     Indication: Endometrial adenocarcinoma
     Dosage: 200 MILLIGRAM, Q3W
     Route: 042
     Dates: start: 20201209
  2. LEVSIN [Concomitant]
     Active Substance: HYOSCYAMINE SULFATE
     Indication: Bladder pain
     Dosage: 1 DOSAGE FORM, Q4H
     Route: 060
     Dates: start: 20220504
  3. SYNTHROID [Concomitant]
     Active Substance: LEVOTHYROXINE SODIUM
     Dosage: 25 MICROGRAM, BY MOUTH 1 TIME EACH DAY.
     Route: 048
     Dates: start: 20210707
  4. SYNTHROID [Concomitant]
     Active Substance: LEVOTHYROXINE SODIUM
     Dosage: 50 MICROGRAM BY MOUTH 1 TIME EACH DAY.
     Route: 048
     Dates: start: 20210707
  5. MIRABEGRON [Concomitant]
     Active Substance: MIRABEGRON
     Dosage: 1 TABLET BY MOUTH 1 TIME EACH DAY
     Route: 048
     Dates: start: 20220504

REACTIONS (44)
  - Hydronephrosis [Unknown]
  - Hydroureter [Recovered/Resolved]
  - Pulmonary infarction [Unknown]
  - Pelvic haemorrhage [Unknown]
  - Pyelonephritis [Unknown]
  - Pulmonary oedema [Unknown]
  - Malignant neoplasm progression [Unknown]
  - Pneumonia [Unknown]
  - Pneumonitis [Unknown]
  - Bedridden [Unknown]
  - Hypophagia [Recovering/Resolving]
  - Urine output decreased [Unknown]
  - Stent placement [Unknown]
  - Faecal volume increased [Unknown]
  - Proctitis [Unknown]
  - Intra-abdominal calcification [Unknown]
  - Lung opacity [Unknown]
  - Pelvic mass [Unknown]
  - Nodule [Unknown]
  - Lymphadenopathy [Unknown]
  - Lung opacity [Unknown]
  - Cardiomegaly [Unknown]
  - Pelvic pain [Unknown]
  - Adrenal adenoma [Unknown]
  - Ureteral disorder [Unknown]
  - Malaise [Unknown]
  - Dehydration [Unknown]
  - Dysgeusia [Recovering/Resolving]
  - Decreased appetite [Unknown]
  - Anaemia [Unknown]
  - Nausea [Unknown]
  - Fatigue [Unknown]
  - Constipation [Unknown]
  - Abdominal pain [Unknown]
  - Back pain [Unknown]
  - Thyroiditis [Unknown]
  - Insurance issue [Unknown]
  - Product use issue [Unknown]
  - Product use issue [Unknown]
  - Product use issue [Unknown]
  - Product use issue [Unknown]
  - Product use issue [Unknown]
  - Product use issue [Unknown]
  - Product use issue [Unknown]

NARRATIVE: CASE EVENT DATE: 20201209
